FAERS Safety Report 6266656-6 (Version None)
Quarter: 2009Q3

REPORT INFORMATION
  Report Type: 
  Country: None (occurrence: None)
  Receive Date: 20090710
  Receipt Date: 20090622
  Transmission Date: 20100115
  Serious: Yes (Death)
  Sender: FDA-Public Use
  Company Number: JPI-P-007574

PATIENT
  Age: 59 Year
  Sex: Female
  Weight: 71.2147 kg

DRUGS (20)
  1. XYREM [Suspect]
     Indication: FIBROMYALGIA
     Dosage: 6 GM (3 GM, 2 IN 1 D), ORAL; 9 GM (4.5 GM, 2 IN 1 D), ORAL
     Route: 048
     Dates: start: 20090424, end: 20090520
  2. XYREM [Suspect]
     Indication: INSOMNIA
     Dosage: 6 GM (3 GM, 2 IN 1 D), ORAL; 9 GM (4.5 GM, 2 IN 1 D), ORAL
     Route: 048
     Dates: start: 20090424, end: 20090520
  3. XYREM [Suspect]
     Indication: SOMNOLENCE
     Dosage: 6 GM (3 GM, 2 IN 1 D), ORAL; 9 GM (4.5 GM, 2 IN 1 D), ORAL
     Route: 048
     Dates: start: 20090424, end: 20090520
  4. XYREM [Suspect]
     Indication: FIBROMYALGIA
     Dosage: 6 GM (3 GM, 2 IN 1 D), ORAL; 9 GM (4.5 GM, 2 IN 1 D), ORAL
     Route: 048
     Dates: start: 20060215
  5. XYREM [Suspect]
     Indication: INSOMNIA
     Dosage: 6 GM (3 GM, 2 IN 1 D), ORAL; 9 GM (4.5 GM, 2 IN 1 D), ORAL
     Route: 048
     Dates: start: 20060215
  6. XYREM [Suspect]
     Indication: SOMNOLENCE
     Dosage: 6 GM (3 GM, 2 IN 1 D), ORAL; 9 GM (4.5 GM, 2 IN 1 D), ORAL
     Route: 048
     Dates: start: 20060215
  7. QUETIAPINE FUMARATE [Concomitant]
  8. ALPRAZOLAM [Concomitant]
  9. ZIPRASIDONE HCL [Concomitant]
  10. TRAZODONE [Concomitant]
  11. PREGABALIN [Concomitant]
  12. VITAMIN B COMPLEX CAP [Concomitant]
  13. VENLAFAXINE HYDROCHLORIDE [Concomitant]
  14. TRAMADOL HCL [Concomitant]
  15. TEGASEROD [Concomitant]
  16. TOPIRAMATE [Concomitant]
  17. OXCARBAZEPINE [Concomitant]
  18. PHENYTOIN [Concomitant]
  19. ZONISAMIDE [Concomitant]
  20. DULOXETINE HYDROCHLORIDE [Concomitant]

REACTIONS (1)
  - DEATH [None]
